FAERS Safety Report 5700330-7 (Version None)
Quarter: 2008Q2

REPORT INFORMATION
  Report Type: 
  Country: None (occurrence: None)
  Receive Date: 20080410
  Receipt Date: 20080409
  Transmission Date: 20081010
  Serious: Yes (Other)
  Sender: FDA-Public Use
  Company Number: B0515816A

PATIENT
  Age: 47 Year
  Sex: Male

DRUGS (2)
  1. LAMICTAL [Suspect]
     Dosage: 200MG PER DAY
     Route: 048
     Dates: start: 20070914
  2. DEPAKENE [Suspect]
     Dosage: 600MG PER DAY
     Route: 048
     Dates: start: 20041103

REACTIONS (1)
  - KERATITIS [None]
